FAERS Safety Report 22637479 (Version 2)
Quarter: 2024Q3

REPORT INFORMATION
  Report Type: Report from Study
  Country: US (occurrence: US)
  Receive Date: 20230626
  Receipt Date: 20240930
  Transmission Date: 20241017
  Serious: Yes (Hospitalization)
  Sender: NOVARTIS
  Company Number: US-002147023-NVSC2023US144294

PATIENT
  Age: 65 Year
  Sex: Female

DRUGS (1)
  1. ENTRESTO [Suspect]
     Active Substance: SACUBITRIL\VALSARTAN
     Indication: Product used for unknown indication
     Dosage: 1 DOSAGE FORM, BID (24/26 MG)
     Route: 048
     Dates: start: 202210, end: 202306

REACTIONS (4)
  - Chest pain [Recovered/Resolved]
  - Loss of consciousness [Unknown]
  - Cardiac discomfort [Unknown]
  - Pain [Unknown]

NARRATIVE: CASE EVENT DATE: 20230617
